FAERS Safety Report 14738821 (Version 3)
Quarter: 2019Q4

REPORT INFORMATION
  Report Type: Report from Study
  Country: TW (occurrence: TW)
  Receive Date: 20180409
  Receipt Date: 20191230
  Transmission Date: 20200122
  Serious: Yes (Hospitalization, Other)
  Sender: FDA-Public Use
  Company Number: PHHY2015TW163828

PATIENT
  Age: 54 Year
  Sex: Male

DRUGS (14)
  1. GENTAMYCIN SULFATE [Concomitant]
     Active Substance: GENTAMICIN SULFATE
     Indication: INFECTION PROPHYLAXIS
     Dosage: 1 DF (80MG/2 M), UNK
     Route: 065
     Dates: start: 20151210, end: 20151221
  2. S-60 [Concomitant]
     Indication: INFECTION PROPHYLAXIS
     Dosage: 1 G, UNK
     Route: 065
     Dates: start: 20151210, end: 20151217
  3. TASIGNA [Suspect]
     Active Substance: NILOTINIB
     Dosage: 600 MG, UNK
     Route: 048
     Dates: start: 20140409
  4. SENNAPUR [Concomitant]
     Indication: PROPHYLAXIS
     Dosage: 12.5 MG, UNK
     Route: 048
     Dates: start: 20151211
  5. TASIGNA [Suspect]
     Active Substance: NILOTINIB
     Indication: CHRONIC MYELOID LEUKAEMIA
     Dosage: 600 MG, UNK
     Route: 048
     Dates: start: 20140305, end: 20140401
  6. BISACODYL. [Concomitant]
     Active Substance: BISACODYL
     Indication: PROPHYLAXIS
     Dosage: 5 MG/TA, UNK
     Route: 054
     Dates: start: 20151221, end: 20151221
  7. SEDICON [Concomitant]
     Indication: PROPHYLAXIS
     Dosage: 1 DF, UNK
     Route: 048
     Dates: start: 20151224, end: 20151227
  8. PANTOLOC [Concomitant]
     Active Substance: PANTOPRAZOLE SODIUM
     Indication: PROPHYLAXIS
     Dosage: 40 MG/VIA, UNK
     Route: 042
     Dates: start: 20151210, end: 20151211
  9. TASIGNA [Suspect]
     Active Substance: NILOTINIB
     Dosage: 300 MG, UNK
     Route: 048
     Dates: start: 20140402, end: 20140408
  10. RINDERON [Concomitant]
     Indication: PROPHYLAXIS
     Dosage: 4 MG/1ML, UNK
     Route: 065
     Dates: start: 20151210, end: 20151211
  11. APO-TRAMADOL/ACET [Concomitant]
     Active Substance: ACETAMINOPHEN\TRAMADOL HYDROCHLORIDE
     Indication: PROPHYLAXIS
     Dosage: 325 MG/TA, UNK
     Route: 048
     Dates: start: 20151210, end: 20151222
  12. LACTULOSE. [Concomitant]
     Active Substance: LACTULOSE
     Indication: PROPHYLAXIS
     Dosage: 300 ML/BO, UNK
     Route: 048
     Dates: start: 20151221, end: 20151221
  13. GOWELL [Concomitant]
     Active Substance: ALDIOXA\MAGNESIUM ALUMINUM SILICATE
     Indication: PROPHYLAXIS
     Dosage: 1 DF, UNK
     Route: 048
     Dates: start: 20151210, end: 20151211
  14. S-60 [Concomitant]
     Dosage: 1 G, UNK
     Route: 065
     Dates: start: 20151217, end: 20151221

REACTIONS (9)
  - Muscular weakness [Not Recovered/Not Resolved]
  - Urinary tract infection [Recovered/Resolved]
  - Neck pain [Recovering/Resolving]
  - Spinal disorder [Not Recovered/Not Resolved]
  - Pain [Not Recovered/Not Resolved]
  - Spinal cord abscess [Not Recovered/Not Resolved]
  - Urethral stenosis [Not Recovered/Not Resolved]
  - Extradural abscess [Recovered/Resolved]
  - Benign prostatic hyperplasia [Recovering/Resolving]

NARRATIVE: CASE EVENT DATE: 20150810
